FAERS Safety Report 9518841 (Version 2)
Quarter: 2013Q4

REPORT INFORMATION
  Report Type: Spontaneous
  Country: US (occurrence: US)
  Receive Date: 20130912
  Receipt Date: 20131121
  Transmission Date: 20140711
  Serious: Yes (Other)
  Sender: FDA-Public Use
  Company Number: US-NOVOPROD-386947

PATIENT
  Age: 19 Year
  Sex: Male
  Weight: 69.1 kg

DRUGS (23)
  1. NORDITROPIN [Suspect]
     Indication: GROWTH HORMONE DEFICIENCY
     Dosage: 0.8 MG, QD
     Route: 058
     Dates: start: 200112
  2. NORDITROPIN [Suspect]
     Dosage: 0.9 MG, UNK
     Dates: start: 200206
  3. NORDITROPIN [Suspect]
     Dosage: 1.0 MG, UNK
     Dates: start: 200210
  4. NORDITROPIN [Suspect]
     Dosage: 1.1 MG, UNK
     Dates: start: 200303
  5. NORDITROPIN [Suspect]
     Dosage: 1.2 MG, UNK
     Dates: start: 200308
  6. NORDITROPIN [Suspect]
     Dosage: 1.4 MG, UNK
     Dates: start: 200312
  7. NORDITROPIN [Suspect]
     Dosage: 1.5 MG, UNK
     Dates: start: 200509
  8. NORDITROPIN [Suspect]
     Dosage: 1.6 MG, UNK
     Dates: start: 200607
  9. NORDITROPIN [Suspect]
     Dosage: 1.7 MG, UNK
     Dates: start: 200701
  10. NORDITROPIN [Suspect]
     Dosage: 2.0 MG, UNK
     Dates: start: 200710
  11. NORDITROPIN [Suspect]
     Dosage: 2.2 MG, UNK
     Dates: start: 200801
  12. NORDITROPIN [Suspect]
     Dosage: 2.4 MG, UNK
     Dates: start: 200811
  13. NORDITROPIN [Suspect]
     Dosage: 2.8 MG, UNK
     Dates: start: 201001
  14. NORDITROPIN NORDIFLEX [Suspect]
     Indication: GROWTH HORMONE DEFICIENCY
     Dosage: UNK
     Route: 058
     Dates: end: 2007
  15. NORDITROPIN FLEXPRO [Suspect]
     Indication: GROWTH HORMONE DEFICIENCY
     Dosage: 2.8 MG, QD
     Route: 058
     Dates: start: 2007, end: 201009
  16. CONCERTA [Concomitant]
     Indication: ATTENTION DEFICIT/HYPERACTIVITY DISORDER
     Dosage: 18 MG, UNK
     Route: 048
     Dates: start: 200501, end: 200509
  17. CONCERTA [Concomitant]
     Dosage: 36 MG, UNK
     Dates: start: 200509, end: 200701
  18. CONCERTA [Concomitant]
     Dosage: 54 MG, UNK
     Dates: start: 200701, end: 200710
  19. RITALIN [Concomitant]
     Indication: ATTENTION DEFICIT/HYPERACTIVITY DISORDER
     Route: 048
  20. SINGULAIR [Concomitant]
     Indication: HYPERSENSITIVITY
     Dosage: 10 MG, UNK
     Route: 048
     Dates: start: 201006, end: 201010
  21. CLARITIN                           /00917501/ [Concomitant]
     Indication: HYPERSENSITIVITY
     Dosage: 10 MG, UNK
     Route: 048
     Dates: start: 200710, end: 201006
  22. CLARITIN-D [Concomitant]
     Indication: PRODUCT USED FOR UNKNOWN INDICATION
     Dosage: 5 MG - 120 MG BID
     Dates: start: 200607, end: 200710
  23. FOCALIN [Concomitant]
     Indication: PRODUCT USED FOR UNKNOWN INDICATION
     Dosage: 25 MG, UNK
     Dates: start: 200710, end: 201006

REACTIONS (1)
  - Cerebellar atrophy [Not Recovered/Not Resolved]
